FAERS Safety Report 6268058-5 (Version None)
Quarter: 2009Q3

REPORT INFORMATION
  Report Type: 
  Country: None (occurrence: None)
  Receive Date: 20090713
  Receipt Date: 20090630
  Transmission Date: 20100115
  Serious: Yes (Other)
  Sender: FDA-Public Use
  Company Number: PAR_03059_2009

PATIENT
  Sex: Female

DRUGS (4)
  1. IBUPROFEN [Suspect]
     Indication: DRUG USE FOR UNKNOWN INDICATION
     Dosage: 1 DF TID ORAL
     Route: 048
     Dates: start: 20081231, end: 20090109
  2. RIVAROXABAN [Suspect]
     Indication: THROMBOSIS PROPHYLAXIS
     Dosage: DF ORAL
     Route: 048
     Dates: start: 20081231, end: 20090109
  3. AMLODIPINE [Concomitant]
  4. ESIDRIX [Concomitant]

REACTIONS (8)
  - DRUG INTERACTION [None]
  - HAEMARTHROSIS [None]
  - HAEMATOMA [None]
  - INTENTIONAL DRUG MISUSE [None]
  - OFF LABEL USE [None]
  - POST PROCEDURAL COMPLICATION [None]
  - POST PROCEDURAL HAEMORRHAGE [None]
  - WITHDRAWAL SYNDROME [None]
